FAERS Safety Report 8816356 (Version 1)
Quarter: 2012Q4

REPORT INFORMATION
  Report Type: Spontaneous
  Country: US (occurrence: None)
  Receive Date: 20120927
  Receipt Date: 20120927
  Transmission Date: 20130627
  Serious: Yes (Other)
  Sender: FDA-Public Use
  Company Number: None

PATIENT
  Sex: Male
  Weight: 68.95 kg

DRUGS (2)
  1. CLONAZEPAM [Suspect]
     Dosage: 1/2 tab in am + 12noon + 1 tab @ HS
     Route: 048
     Dates: start: 199610, end: 199701
  2. CLONAZEPAM [Suspect]
     Route: 048

REACTIONS (2)
  - Product substitution issue [None]
  - Aggression [None]
